FAERS Safety Report 4783664-2 (Version None)
Quarter: 2005Q3

REPORT INFORMATION
  Report Type: 
  Country: None (occurrence: None)
  Receive Date: 20050927
  Receipt Date: 20050818
  Transmission Date: 20060218
  Serious: No
  Sender: FDA-Public Use
  Company Number: USA050496322

PATIENT
  Age: 5 Year
  Sex: Male
  Weight: 25 kg

DRUGS (3)
  1. STRATTERA [Suspect]
     Indication: ATTENTION DEFICIT/HYPERACTIVITY DISORDER
     Dosage: 40 MG
     Dates: start: 20040501
  2. CLARITIN [Concomitant]
  3. CONCERTA [Concomitant]

REACTIONS (3)
  - DISTURBANCE IN ATTENTION [None]
  - PRESCRIBED OVERDOSE [None]
  - REGRESSIVE BEHAVIOUR [None]
